FAERS Safety Report 10643370 (Version 1)
Quarter: 2014Q4

REPORT INFORMATION
  Report Type: Spontaneous
  Country: US (occurrence: None)
  Receive Date: 20141201
  Receipt Date: 20141201
  Transmission Date: 20150529
  Serious: Yes (Other)
  Sender: FDA-Public Use
  Company Number: USEN-9GVK9T

PATIENT
  Age: 18 Year

DRUGS (1)
  1. DURAPREP [Suspect]
     Active Substance: IODINE POVACRYLEX\ISOPROPYL ALCOHOL
     Indication: PREOPERATIVE CARE
     Dosage: SINGLE APPLICATION
     Route: 061

REACTIONS (1)
  - Thermal burn [None]

NARRATIVE: CASE EVENT DATE: 20140220
